FAERS Safety Report 5998580-8 (Version None)
Quarter: 2008Q4

REPORT INFORMATION
  Report Type: 
  Country: None (occurrence: None)
  Receive Date: 20081213
  Receipt Date: 20080714
  Transmission Date: 20090506
  Serious: No
  Sender: FDA-Public Use
  Company Number: US-AMGEN-KDL270738

PATIENT
  Sex: Male
  Weight: 108.5 kg

DRUGS (2)
  1. ENBREL [Suspect]
     Indication: RHEUMATOID ARTHRITIS
     Route: 058
     Dates: start: 20070531
  2. PREDNISONE TAB [Concomitant]
     Dates: start: 20070418

REACTIONS (6)
  - ARTHRALGIA [None]
  - BACK PAIN [None]
  - COMPRESSION FRACTURE [None]
  - ERYTHEMA [None]
  - INJECTION SITE ERYTHEMA [None]
  - INJECTION SITE URTICARIA [None]
